FAERS Safety Report 10997345 (Version 1)
Quarter: 2015Q2

REPORT INFORMATION
  Report Type: Spontaneous
  Country: US (occurrence: US)
  Receive Date: 20150408
  Receipt Date: 20150408
  Transmission Date: 20150821
  Serious: No
  Sender: FDA-Public Use
  Company Number: US-BANPHARM-20142618

PATIENT
  Age: 84 Year
  Sex: Female
  Weight: 68.04 kg

DRUGS (4)
  1. VITAMINS [Concomitant]
     Active Substance: VITAMINS
  2. ANACIN [Concomitant]
     Active Substance: ASPIRIN\CAFFEINE
  3. PHILLIPS COLON HEALTH [Concomitant]
  4. ALEVE [Suspect]
     Active Substance: NAPROXEN SODIUM
     Indication: PAIN
     Route: 048
     Dates: start: 20140405, end: 20140406

REACTIONS (1)
  - Tenderness [Recovered/Resolved]

NARRATIVE: CASE EVENT DATE: 20140408
